FAERS Safety Report 13744961 (Version 1)
Quarter: 2017Q3

REPORT INFORMATION
  Report Type: Spontaneous
  Country: US (occurrence: US)
  Receive Date: 20170712
  Receipt Date: 20170712
  Transmission Date: 20171127
  Serious: No
  Sender: FDA-Public Use
  Company Number: US-PFIZER INC-2017300637

PATIENT
  Age: 50 Year
  Sex: Female

DRUGS (1)
  1. METHOTREXATE SODIUM. [Suspect]
     Active Substance: METHOTREXATE SODIUM
     Dosage: UNK

REACTIONS (9)
  - Urinary tract infection [Unknown]
  - Drug effect incomplete [Unknown]
  - C-reactive protein increased [Unknown]
  - Hyperaesthesia [Unknown]
  - Arthralgia [Unknown]
  - Chromaturia [Unknown]
  - Musculoskeletal stiffness [Unknown]
  - Pain in extremity [Unknown]
  - Urine odour abnormal [Unknown]
